FAERS Safety Report 5717960-9 (Version None)
Quarter: 2008Q2

REPORT INFORMATION
  Report Type: 
  Country: None (occurrence: None)
  Receive Date: 20080425
  Receipt Date: 20080417
  Transmission Date: 20081010
  Serious: Yes (Other)
  Sender: FDA-Public Use
  Company Number: A0717340A

PATIENT
  Age: 60 Year
  Sex: Male
  Weight: 68.9 kg

DRUGS (7)
  1. ZIAGEN [Suspect]
     Indication: HIV INFECTION
     Dosage: 300MG TWICE PER DAY
     Route: 048
     Dates: start: 20080303
  2. KALETRA [Concomitant]
  3. TRUVADA [Concomitant]
  4. BACTRIM [Concomitant]
  5. ZITHROMAX [Concomitant]
  6. PRILOSEC [Concomitant]
  7. MULTI-VITAMIN [Concomitant]

REACTIONS (4)
  - GASTROINTESTINAL DISORDER [None]
  - HYPERSENSITIVITY [None]
  - PYREXIA [None]
  - SUICIDAL IDEATION [None]
